FAERS Safety Report 24807619 (Version 1)
Quarter: 2025Q1

REPORT INFORMATION
  Report Type: Spontaneous
  Country: US (occurrence: US)
  Receive Date: 20250105
  Receipt Date: 20250105
  Transmission Date: 20250409
  Serious: Yes (Hospitalization)
  Sender: PRINSTON PHARMACEUTICAL
  Company Number: US-PRINSTON PHARMACEUTICAL INC.-2024PRN00479

PATIENT
  Age: 43 Year
  Sex: Female

DRUGS (6)
  1. LISINOPRIL [Suspect]
     Active Substance: LISINOPRIL
  2. ADALIMUMAB [Concomitant]
     Active Substance: ADALIMUMAB
  3. METFORMIN [Concomitant]
     Active Substance: METFORMIN HYDROCHLORIDE
  4. SEMAGLUTIDE [Concomitant]
     Active Substance: SEMAGLUTIDE
  5. PANTOPRAZOLE [Concomitant]
     Active Substance: PANTOPRAZOLE
  6. UNSPECIFIED ORAL CONTRACEPTIVE [Concomitant]

REACTIONS (1)
  - Intestinal angioedema [Recovered/Resolved]
